FAERS Safety Report 8549375-2 (Version None)
Quarter: 2012Q3

REPORT INFORMATION
  Report Type: 
  Country: None (occurrence: None)
  Receive Date: 20120720
  Receipt Date: 20120720
  Transmission Date: 20120928
  Serious: Yes (Other)
  Sender: FDA-Public Use
  Company Number: None

PATIENT
  Age: 48 Year
  Sex: Female
  Weight: 54.4316 kg

DRUGS (1)
  1. ALENDRONATE SODIUM [Suspect]
     Indication: OSTEOPOROSIS
     Dosage: 70 MG ONCE WEEKLY
     Dates: start: 20110214, end: 20120714

REACTIONS (7)
  - OROPHARYNGEAL PAIN [None]
  - MYALGIA [None]
  - THROAT IRRITATION [None]
  - OESOPHAGITIS [None]
  - MALAISE [None]
  - INFLUENZA LIKE ILLNESS [None]
  - FOREIGN BODY [None]
